FAERS Safety Report 7088868-4 (Version None)
Quarter: 2010Q4

REPORT INFORMATION
  Report Type: 
  Country: None (occurrence: None)
  Receive Date: 20101029
  Receipt Date: 20101018
  Transmission Date: 20110411
  Serious: Yes (Hospitalization)
  Sender: FDA-Public Use
  Company Number: AE 2010-290

PATIENT
  Age: 15 Year
  Sex: Female

DRUGS (10)
  1. FAZACLO ODT [Suspect]
     Indication: SUICIDE ATTEMPT
     Dosage: 200 MG DAILY TABLETS PO
     Route: 048
     Dates: start: 20081002
  2. ALBUTEROL [Concomitant]
  3. ADDERALL XL [Concomitant]
  4. COLACE [Concomitant]
  5. PROZAC [Concomitant]
  6. VISTARIL [Concomitant]
  7. LAMICTAL [Concomitant]
  8. NAPROXEN [Concomitant]
  9. NALTREXONE HYDROCHLORIDE [Concomitant]
  10. NASONEX [Concomitant]

REACTIONS (7)
  - ABNORMAL BEHAVIOUR [None]
  - AFFECT LABILITY [None]
  - AGITATION [None]
  - CARDIAC DISORDER [None]
  - INCORRECT DOSE ADMINISTERED [None]
  - LOSS OF CONSCIOUSNESS [None]
  - SUICIDE ATTEMPT [None]
